FAERS Safety Report 7935189-0 (Version None)
Quarter: 2011Q4

REPORT INFORMATION
  Report Type: 
  Country: None (occurrence: None)
  Receive Date: 20111122
  Receipt Date: 20111114
  Transmission Date: 20120403
  Serious: No
  Sender: FDA-Public Use
  Company Number: US-BAYER-2011-110273

PATIENT
  Sex: Female

DRUGS (2)
  1. BEYAZ [Concomitant]
     Indication: ACNE
  2. MIRENA [Suspect]
     Indication: CONTRACEPTION
     Dosage: 20 ?G/D, CONT
     Route: 015

REACTIONS (2)
  - METRORRHAGIA [None]
  - DRUG DOSE OMISSION [None]
